FAERS Safety Report 9247644 (Version 2)
Quarter: 2013Q2

REPORT INFORMATION
  Report Type: Spontaneous
  Country: US (occurrence: US)
  Receive Date: 20130423
  Receipt Date: 20130628
  Transmission Date: 20140414
  Serious: Yes (Hospitalization)
  Sender: FDA-Public Use
  Company Number: US-ELI_LILLY_AND_COMPANY-US201304005343

PATIENT
  Age: 76 Year
  Sex: Female
  Weight: 88.44 kg

DRUGS (1)
  1. HUMALOG LISPRO [Suspect]
     Dosage: UNK
     Route: 058

REACTIONS (7)
  - Blood glucose increased [Recovered/Resolved]
  - Pallor [Unknown]
  - Chest pain [Unknown]
  - Hypertension [Unknown]
  - Nausea [Unknown]
  - Infusion site bruising [Not Recovered/Not Resolved]
  - Underdose [Unknown]
